FAERS Safety Report 17882790 (Version 1)
Quarter: 2020Q2

REPORT INFORMATION
  Report Type: Spontaneous
  Country: US (occurrence: US)
  Receive Date: 20200610
  Receipt Date: 20200610
  Transmission Date: 20200714
  Serious: Yes (Death, Hospitalization, Other)
  Sender: FDA-Public Use
  Company Number: US-GILEAD-2020-0469839

PATIENT
  Age: 73 Year
  Sex: Female
  Weight: 74 kg

DRUGS (25)
  1. NYSTATIN. [Concomitant]
     Active Substance: NYSTATIN
  2. REMDESIVIR. [Suspect]
     Active Substance: REMDESIVIR
     Dosage: 100 MG, QD
     Route: 042
     Dates: start: 20200523, end: 20200524
  3. IMDUR [Concomitant]
     Active Substance: ISOSORBIDE MONONITRATE
  4. NEURONTIN [Concomitant]
     Active Substance: GABAPENTIN
  5. ELIQUIS [Concomitant]
     Active Substance: APIXABAN
  6. ASPIRIN (E.C.) [Concomitant]
     Active Substance: ASPIRIN
  7. CARDIZEM CD [Concomitant]
     Active Substance: DILTIAZEM HYDROCHLORIDE
  8. LEVETIRACETAM. [Concomitant]
     Active Substance: LEVETIRACETAM
  9. LASIX [Concomitant]
     Active Substance: FUROSEMIDE
  10. DECADRON [Concomitant]
     Active Substance: DEXAMETHASONE
  11. REMDESIVIR. [Suspect]
     Active Substance: REMDESIVIR
     Indication: COVID-19
     Dosage: 100 MG, QD
     Route: 042
     Dates: start: 20200521, end: 20200522
  12. TOPAMAX [Concomitant]
     Active Substance: TOPIRAMATE
  13. TYLENOL [Concomitant]
     Active Substance: ACETAMINOPHEN
  14. BREO ELLIPTA [Concomitant]
     Active Substance: FLUTICASONE FUROATE\VILANTEROL TRIFENATATE
  15. MORPHINE [Concomitant]
     Active Substance: MORPHINE
  16. ROCEPHIN BIOCHEMIE [Concomitant]
  17. CARDIZEM CD [Concomitant]
     Active Substance: DILTIAZEM HYDROCHLORIDE
  18. COMBIVENT [Concomitant]
     Active Substance: ALBUTEROL SULFATE\IPRATROPIUM BROMIDE
  19. SODIUM CHLORIDE. [Concomitant]
     Active Substance: SODIUM CHLORIDE
  20. NAMENDA [Concomitant]
     Active Substance: MEMANTINE HYDROCHLORIDE
  21. PEPCID AC [Concomitant]
     Active Substance: FAMOTIDINE
  22. HEPARIN [Concomitant]
     Active Substance: HEPARIN SODIUM
  23. DEXTROSE. [Concomitant]
     Active Substance: DEXTROSE
  24. ZITHROMAX [Concomitant]
     Active Substance: AZITHROMYCIN DIHYDRATE
  25. POTASSIUM CHLORIDE. [Concomitant]
     Active Substance: POTASSIUM CHLORIDE

REACTIONS (2)
  - Cerebrovascular accident [Fatal]
  - Creatinine renal clearance decreased [Not Recovered/Not Resolved]

NARRATIVE: CASE EVENT DATE: 20200525
